FAERS Safety Report 7358764-3 (Version None)
Quarter: 2011Q1

REPORT INFORMATION
  Report Type: 
  Country: None (occurrence: None)
  Receive Date: 20110317
  Receipt Date: 20110310
  Transmission Date: 20110831
  Serious: Yes (Death, Hospitalization)
  Sender: FDA-Public Use
  Company Number: A0917550A

PATIENT
  Age: 64 Year
  Sex: Male

DRUGS (2)
  1. ZOFRAN [Suspect]
     Indication: CHEMOTHERAPY
     Dosage: 8MG TWICE PER DAY
     Route: 048
     Dates: start: 20101201
  2. XELODA [Concomitant]

REACTIONS (1)
  - DEATH [None]
